FAERS Safety Report 10397190 (Version 1)
Quarter: 2014Q3

REPORT INFORMATION
  Report Type: Spontaneous
  Country: JP (occurrence: JP)
  Receive Date: 20140820
  Receipt Date: 20140820
  Transmission Date: 20150326
  Serious: No
  Sender: FDA-Public Use
  Company Number: PHHY2013JP161552

PATIENT
  Sex: Female

DRUGS (6)
  1. TASIGNA [Suspect]
     Active Substance: NILOTINIB
     Dosage: 300 MG, DAILY
  2. TASIGNA [Suspect]
     Active Substance: NILOTINIB
     Indication: CHRONIC MYELOID LEUKAEMIA
     Dosage: 300 MG, DAILY
     Dates: start: 20130222
  3. TASIGNA [Suspect]
     Active Substance: NILOTINIB
     Dosage: DOSE CESSATION FOR TWO WEEKS
  4. MELPHALAN [Concomitant]
     Active Substance: MELPHALAN
     Dosage: UNK UKN, UNK
  5. PREDNISONE. [Concomitant]
     Active Substance: PREDNISONE
     Dosage: UNK UKN, UNK
  6. TASIGNA [Suspect]
     Active Substance: NILOTINIB
     Dosage: 600 MG, DAILY

REACTIONS (1)
  - Thrombocytopenia [Unknown]
